FAERS Safety Report 4781014-9 (Version None)
Quarter: 2005Q3

REPORT INFORMATION
  Report Type: 
  Country: None (occurrence: None)
  Receive Date: 20050926
  Receipt Date: 20050914
  Transmission Date: 20060218
  Serious: Yes (Death, Other)
  Sender: FDA-Public Use
  Company Number: 2005123296

PATIENT
  Age: 73 Year
  Sex: Male
  Weight: 80 kg

DRUGS (3)
  1. ATORVASTATIN CALCIUM [Suspect]
     Indication: CORONARY ARTERY SURGERY
     Dosage: 10 MG (10 MG, 1 IN 1 D), ORAL
     Route: 048
     Dates: start: 20000321, end: 20050828
  2. KARDEGIC (ACETYLSALICYLATE LYSINE) [Concomitant]
  3. ZADITEN [Concomitant]

REACTIONS (1)
  - PULMONARY FIBROSIS [None]
